FAERS Safety Report 16320262 (Version 12)
Quarter: 2019Q4

REPORT INFORMATION
  Report Type: Spontaneous
  Country: US (occurrence: US)
  Receive Date: 20190516
  Receipt Date: 20191113
  Transmission Date: 20200122
  Serious: No
  Sender: FDA-Public Use
  Company Number: US-PFIZER INC-2019204763

PATIENT
  Age: 59 Year
  Sex: Female
  Weight: 102 kg

DRUGS (10)
  1. LYRICA [Suspect]
     Active Substance: PREGABALIN
     Indication: NEUROPATHY PERIPHERAL
     Dosage: 25 MG, 1X/DAY
     Route: 048
     Dates: start: 20190411, end: 2019
  2. LYRICA [Suspect]
     Active Substance: PREGABALIN
     Dosage: 100 MG, 2X/DAY (FOR 1-2 WEEKS)
     Dates: start: 2019, end: 2019
  3. LYRICA [Suspect]
     Active Substance: PREGABALIN
     Dosage: 100 MG, 3X/DAY, [FOR 30 DAYS]
     Route: 048
  4. LYRICA [Suspect]
     Active Substance: PREGABALIN
     Dosage: 300 MG, DAILY (1 CAPSULE Q AM, AND 2 CAPSULES AT BED TIME)
     Route: 048
  5. LYRICA [Suspect]
     Active Substance: PREGABALIN
     Dosage: 100 MG, 2X/DAY (FOR 1-2 WEEKS)
     Route: 048
  6. LYRICA [Suspect]
     Active Substance: PREGABALIN
     Dosage: 100 MG, 4X/DAY
     Dates: start: 20190919
  7. LYRICA [Suspect]
     Active Substance: PREGABALIN
     Dosage: UNK [1 AT NOON, 1 AT 3, 1 AT 5, AND 2 AT NIGHT]
  8. LYRICA [Suspect]
     Active Substance: PREGABALIN
     Indication: AUTONOMIC NEUROPATHY
     Dosage: 50 MG, 1X/DAY (NIGHTLY), (FOR 1 WEEK)
     Route: 048
     Dates: start: 2019, end: 2019
  9. LYRICA [Suspect]
     Active Substance: PREGABALIN
     Dosage: 100 MG, 3X/DAY FOR 30 DAYS
     Route: 048
     Dates: start: 2019
  10. LYRICA [Suspect]
     Active Substance: PREGABALIN
     Dosage: 100 MG, DAILY (GO DOWN TO 100MG PER DAY STARTING ON FRIDAY/100MG ON SATURDAY AND 100MG ON SUNDAY)
     Dates: start: 20190809

REACTIONS (2)
  - Intentional product misuse [Unknown]
  - Drug ineffective [Not Recovered/Not Resolved]

NARRATIVE: CASE EVENT DATE: 2019
